FAERS Safety Report 9164429 (Version 1)
Quarter: 2013Q1

REPORT INFORMATION
  Report Type: Spontaneous
  Country: US (occurrence: None)
  Receive Date: 20130225
  Receipt Date: 20130225
  Transmission Date: 20140127
  Serious: Yes (Hospitalization)
  Sender: FDA-Public Use
  Company Number: UTC-029420

PATIENT
  Age: 43 Year
  Sex: Female

DRUGS (2)
  1. TYVASO (6 MICROGRAM, AEROSOL FOR INHALATION) (TREPROSTINIL SODIUM) [Suspect]
     Indication: PULMONARY ARTERIAL HYPERTENSION
     Dosage: (18 MCG, 4 IN 1 D)
     Route: 055
     Dates: start: 20130114, end: 201301
  2. IRCA (TADALAFIL) (UNKNOWN) [Concomitant]

REACTIONS (2)
  - Chest pain [None]
  - Dyspnoea [None]
